FAERS Safety Report 8572459-X (Version None)
Quarter: 2012Q3

REPORT INFORMATION
  Report Type: 
  Country: None (occurrence: None)
  Receive Date: 20120806
  Receipt Date: 20120725
  Transmission Date: 20120928
  Serious: Yes (Death, Hospitalization)
  Sender: FDA-Public Use
  Company Number: MX-ROCHE-1093806

PATIENT
  Sex: Female
  Weight: 46 kg

DRUGS (6)
  1. GEMCITABINE HYDROCHLORIDE [Concomitant]
     Indication: PANCREATIC CARCINOMA
     Dates: start: 20110301
  2. CINNARIZINE [Concomitant]
     Indication: VERTIGO
  3. XELODA [Suspect]
     Indication: PANCREATIC CARCINOMA
     Route: 048
     Dates: start: 20111001
  4. ASPIRIN [Concomitant]
     Indication: HYPERTENSION
     Route: 048
  5. IRBESARTAN [Concomitant]
     Indication: HYPERTENSION
  6. XELODA [Suspect]
     Route: 048
     Dates: start: 20111101

REACTIONS (4)
  - PANCREATIC CARCINOMA [None]
  - PALMAR-PLANTAR ERYTHRODYSAESTHESIA SYNDROME [None]
  - FATIGUE [None]
  - DEPRESSION [None]
